FAERS Safety Report 4899128-1 (Version None)
Quarter: 2006Q1

REPORT INFORMATION
  Report Type: 
  Country: None (occurrence: None)
  Receive Date: 20060126
  Receipt Date: 20051212
  Transmission Date: 20060701
  Serious: Yes (Other)
  Sender: FDA-Public Use
  Company Number: 2006BH000458

PATIENT
  Age: 65 Year
  Sex: Female

DRUGS (1)
  1. IGIV GENERIC [Suspect]
     Indication: PEMPHIGUS
     Dosage: 1000 MG/KG; EVERY DAY; IV
     Route: 042

REACTIONS (1)
  - VENOUS THROMBOSIS LIMB [None]
